FAERS Safety Report 13351571 (Version 2)
Quarter: 2017Q2

REPORT INFORMATION
  Report Type: Spontaneous
  Country: US (occurrence: US)
  Receive Date: 20170320
  Receipt Date: 20170425
  Transmission Date: 20170830
  Serious: No
  Sender: FDA-Public Use
  Company Number: US-TAIHO ONCOLOGY INC-EU-2017-00466

PATIENT
  Age: 72 Year
  Sex: Female

DRUGS (8)
  1. BIMATOPROST. [Concomitant]
     Active Substance: BIMATOPROST
     Dosage: NI
  2. SERTRALINE [Concomitant]
     Active Substance: SERTRALINE HYDROCHLORIDE
     Dosage: NI
  3. DYAZIDE [Concomitant]
     Active Substance: HYDROCHLOROTHIAZIDE\TRIAMTERENE
     Dosage: NI
  4. LONSURF [Suspect]
     Active Substance: TIPIRACIL HYDROCHLORIDE\TRIFLURIDINE
     Indication: METASTASES TO LUNG
     Route: 048
     Dates: start: 20170221
  5. FERROUS SULFATE. [Concomitant]
     Active Substance: FERROUS SULFATE
     Dosage: NI
  6. TIMOLOL. [Concomitant]
     Active Substance: TIMOLOL
     Dosage: NI
  7. METOPROLOL SUCCINATE. [Concomitant]
     Active Substance: METOPROLOL SUCCINATE
     Dosage: NI
  8. IRON [Concomitant]
     Active Substance: IRON
     Dosage: NI

REACTIONS (3)
  - Extrasystoles [Unknown]
  - Joint swelling [Unknown]
  - Off label use [Not Recovered/Not Resolved]

NARRATIVE: CASE EVENT DATE: 2017
